FAERS Safety Report 6150650-X (Version None)
Quarter: 2009Q2

REPORT INFORMATION
  Report Type: 
  Country: None (occurrence: None)
  Receive Date: 20090408
  Receipt Date: 20090408
  Transmission Date: 20091009
  Serious: Yes (Hospitalization)
  Sender: FDA-Public Use
  Company Number: None

PATIENT
  Sex: Male
  Weight: 77.6 kg

DRUGS (4)
  1. CIPROFLOXACIN HCL [Suspect]
     Indication: PROPHYLAXIS
     Dosage: 400 MG ONCE IV
     Route: 042
     Dates: start: 20090331, end: 20090331
  2. CIPROFLOXACIN HCL [Suspect]
     Indication: SURGERY
     Dosage: 400 MG ONCE IV
     Route: 042
     Dates: start: 20090331, end: 20090331
  3. CIPROFLOXACIN HCL [Suspect]
  4. CIPROFLOXACIN HCL [Suspect]

REACTIONS (2)
  - ERYTHEMA [None]
  - INFUSION RELATED REACTION [None]
